FAERS Safety Report 5281869-8 (Version None)
Quarter: 2007Q1

REPORT INFORMATION
  Report Type: 
  Country: None (occurrence: None)
  Receive Date: 20070326
  Receipt Date: 20070308
  Transmission Date: 20070707
  Serious: Yes (Hospitalization)
  Sender: FDA-Public Use
  Company Number: 15916

PATIENT
  Age: 84 Year
  Sex: Male

DRUGS (1)
  1. CYTARABINE. MFR: MAYNE PHARMA [Suspect]
     Indication: ACUTE MYELOID LEUKAEMIA
     Dosage: 20 MG/M2 QD SC
     Route: 058
     Dates: start: 20070221, end: 20070301

REACTIONS (1)
  - FEBRILE NEUTROPENIA [None]
